FAERS Safety Report 23406709 (Version 1)
Quarter: 2024Q1

REPORT INFORMATION
  Report Type: Spontaneous
  Country: US (occurrence: None)
  Receive Date: 20240115
  Receipt Date: 20240115
  Transmission Date: 20240410
  Serious: Yes (Hospitalization)
  Sender: FDA-Public Use
  Company Number: None

PATIENT
  Sex: Female

DRUGS (11)
  1. MEKINIST [Suspect]
     Active Substance: TRAMETINIB DIMETHYL SULFOXIDE
     Indication: Lung carcinoma cell type unspecified stage 0
     Dosage: FREQUENCY : DAILY;?
     Route: 048
     Dates: start: 20230914
  2. ASPIRIN [Concomitant]
     Active Substance: ASPIRIN
  3. CLARISCAN INJ [Concomitant]
  4. IMODIUM A-D [Concomitant]
     Active Substance: LOPERAMIDE HYDROCHLORIDE
  5. LEVETIRACETAM [Concomitant]
     Active Substance: LEVETIRACETAM
  6. LEVETIRACETAM [Concomitant]
     Active Substance: LEVETIRACETAM
  7. LIPITOR TAB 20MG [Concomitant]
  8. OMNIPAQUE INJ 300 MG/ML [Concomitant]
  9. TAFINLAR [Concomitant]
     Active Substance: DABRAFENIB MESYLATE
  10. TAGRISSO [Concomitant]
     Active Substance: OSIMERTINIB
  11. XGEVA [Concomitant]
     Active Substance: DENOSUMAB

REACTIONS (2)
  - Dehydration [None]
  - Loss of consciousness [None]
